FAERS Safety Report 9387504 (Version 1)
Quarter: 2013Q3

REPORT INFORMATION
  Report Type: Report from Study
  Country: CA (occurrence: CA)
  Receive Date: 20130708
  Receipt Date: 20130708
  Transmission Date: 20140515
  Serious: Yes (Hospitalization)
  Sender: FDA-Public Use
  Company Number: CA-JNJFOC-20130702273

PATIENT
  Sex: Male
  Weight: 52.1 kg

DRUGS (8)
  1. REMICADE [Suspect]
     Indication: ANKYLOSING SPONDYLITIS
     Route: 042
     Dates: start: 201011
  2. PANTOLOC [Concomitant]
     Route: 065
  3. FENTANYL [Concomitant]
     Route: 065
  4. SERTRALINE [Concomitant]
     Route: 065
  5. REACTINE [Concomitant]
     Route: 065
  6. TAMSULOSIN [Concomitant]
     Route: 065
  7. BACLOFEN [Concomitant]
     Route: 065
  8. AMITRIPTYLINE [Concomitant]
     Route: 065

REACTIONS (3)
  - Rib fracture [Unknown]
  - Lower limb fracture [Unknown]
  - Road traffic accident [Unknown]
